FAERS Safety Report 18975236 (Version 1)
Quarter: 2021Q1

REPORT INFORMATION
  Report Type: Spontaneous
  Country: CN (occurrence: CN)
  Receive Date: 20210305
  Receipt Date: 20210305
  Transmission Date: 20210420
  Serious: Yes (Other)
  Sender: FDA-Public Use
  Company Number: CN-ASTRAZENECA-2021A102214

PATIENT
  Age: 17705 Day
  Sex: Female
  Weight: 56 kg

DRUGS (4)
  1. LEVOFLOXACIN. [Suspect]
     Active Substance: LEVOFLOXACIN
     Indication: HELICOBACTER INFECTION
     Route: 048
     Dates: start: 20210206, end: 20210220
  2. ESOMEPRAZOLE MAGNESIUM. [Suspect]
     Active Substance: ESOMEPRAZOLE MAGNESIUM
     Indication: HELICOBACTER INFECTION
     Route: 048
     Dates: start: 20210206, end: 20210220
  3. FURAZOLIDONE [Suspect]
     Active Substance: FURAZOLIDONE
     Indication: HELICOBACTER INFECTION
     Route: 048
     Dates: start: 20210206, end: 20210220
  4. BISMUTH POTASSIUM CITRATE [Suspect]
     Active Substance: BISMUTH SUBCITRATE
     Indication: HELICOBACTER INFECTION
     Route: 048
     Dates: start: 20210206, end: 20210220

REACTIONS (4)
  - Pruritus [Recovering/Resolving]
  - Chest discomfort [Recovering/Resolving]
  - Tachypnoea [Recovering/Resolving]
  - Rash [Recovering/Resolving]

NARRATIVE: CASE EVENT DATE: 20210220
